FAERS Safety Report 5518848-9 (Version None)
Quarter: 2007Q4

REPORT INFORMATION
  Report Type: 
  Country: None (occurrence: None)
  Receive Date: 20071113
  Receipt Date: 20071030
  Transmission Date: 20080405
  Serious: Yes (Other)
  Sender: FDA-Public Use
  Company Number: B0494471A

PATIENT
  Age: 56 Year
  Sex: Male

DRUGS (2)
  1. PAROXETINE HCL [Suspect]
     Indication: DEPRESSION
     Dosage: SEE DOSAGE TEXT
  2. LEVOTHYROXINE SODIUM [Concomitant]

REACTIONS (5)
  - AUTOIMMUNE THYROIDITIS [None]
  - BRADYCARDIA [None]
  - CONDITION AGGRAVATED [None]
  - HYPOTHYROIDISM [None]
  - NO THERAPEUTIC RESPONSE [None]
